FAERS Safety Report 7821879-7 (Version None)
Quarter: 2011Q4

REPORT INFORMATION
  Report Type: 
  Country: None (occurrence: None)
  Receive Date: 20111018
  Receipt Date: 20110816
  Transmission Date: 20120403
  Serious: No
  Sender: FDA-Public Use
  Company Number: US-ASTRAZENECA-2011SE33965

PATIENT
  Age: 67 Year
  Sex: Female
  Weight: 18.1 kg

DRUGS (3)
  1. ADVIR [Concomitant]
  2. NEXIUM [Concomitant]
  3. SYMBICORT [Suspect]
     Indication: CHRONIC OBSTRUCTIVE PULMONARY DISEASE
     Dosage: TOTAL DAILY DOSE 160, BID
     Route: 055
     Dates: start: 20100101

REACTIONS (2)
  - DYSPNOEA [None]
  - DRUG DOSE OMISSION [None]
